FAERS Safety Report 4860927-3 (Version None)
Quarter: 2005Q4

REPORT INFORMATION
  Report Type: 
  Country: None (occurrence: None)
  Receive Date: 20051216
  Receipt Date: 20051205
  Transmission Date: 20060501
  Serious: Yes (Hospitalization, Other)
  Sender: FDA-Public Use
  Company Number: 2005162878

PATIENT
  Age: 72 Year
  Sex: Male

DRUGS (10)
  1. MINIPRESS [Suspect]
     Indication: ILL-DEFINED DISORDER
     Dosage: ORAL
     Route: 048
  2. LOXONIN (LOXOPROFEN SODIUM) [Suspect]
     Indication: HEADACHE
  3. MARZULENE S (LEVOFLUTAMIDE, SODIUM GUALENATE) [Suspect]
     Indication: ILL-DEFINED DISORDER
     Dosage: ORAL
     Route: 048
  4. JUVELA (TOCOPHEROL) [Suspect]
     Indication: ILL-DEFINED DISORDER
  5. COMELIAN (DILAZEP DIHYDROCHLORIDE) [Suspect]
     Indication: ILL-DEFINED DISORDER
     Dosage: ORAL
     Route: 048
  6. CALSLOT (MANIDIPINE HYDROCHLORIDE) [Suspect]
     Indication: ILL-DEFINED DISORDER
     Dosage: ORAL
     Route: 048
  7. THEO-DUR [Suspect]
     Indication: ILL-DEFINED DISORDER
  8. ASTOMIN (DIMEMORFAN PHOSPHATE) [Suspect]
     Indication: ILL-DEFINED DISORDER
     Dosage: ORAL
     Route: 048
  9. BISOLVON (BROMHEXINE HYDROCHLORIDE) [Suspect]
     Indication: ILL-DEFINED DISORDER
  10. ANTIINFLAMMATORY/ANTIRHEUMATIC NON-STEROIDS (ANTIFLAMMATORY/ANTIRHEUMA [Concomitant]

REACTIONS (4)
  - ACUTE RESPIRATORY FAILURE [None]
  - INTERSTITIAL LUNG DISEASE [None]
  - LYMPHADENOPATHY [None]
  - METASTATIC NEOPLASM [None]
